FAERS Safety Report 4347872-7 (Version None)
Quarter: 2004Q2

REPORT INFORMATION
  Report Type: 
  Country: None (occurrence: None)
  Receive Date: 20040422
  Receipt Date: 20040325
  Transmission Date: 20050107
  Serious: Yes (Hospitalization)
  Sender: FDA-Public Use
  Company Number: AE#2004-MIBG-001 (FDB-2004-008)

PATIENT
  Age: 75 Year
  Sex: Female

DRUGS (1)
  1. IOBENGUANE SULFATE I 131 [Suspect]
     Dosage: 0.5 MCI/INJECTION
     Dates: start: 20040323

REACTIONS (4)
  - CHEST DISCOMFORT [None]
  - CHILLS [None]
  - HYPERTENSION [None]
  - SOMNOLENCE [None]
